FAERS Safety Report 5026751-6 (Version None)
Quarter: 2006Q2

REPORT INFORMATION
  Report Type: 
  Country: None (occurrence: None)
  Receive Date: 20060615
  Receipt Date: 20060606
  Transmission Date: 20061013
  Serious: Yes (Hospitalization, Other)
  Sender: FDA-Public Use
  Company Number: US-JNJFOC-20040300768

PATIENT
  Sex: Female
  Weight: 133.36 kg

DRUGS (32)
  1. REMICADE [Suspect]
     Indication: PSORIASIS
     Route: 042
  2. REMICADE [Suspect]
     Indication: RHEUMATOID ARTHRITIS
     Dosage: 23 INFUSIONS
     Route: 042
  3. METHOTREXATE [Suspect]
     Indication: RHEUMATOID ARTHRITIS
  4. MULTIVITAMIN [Concomitant]
  5. MULTIVITAMIN [Concomitant]
  6. MULTIVITAMIN [Concomitant]
  7. MULTIVITAMIN [Concomitant]
  8. MULTIVITAMIN [Concomitant]
  9. MULTIVITAMIN [Concomitant]
  10. MULTIVITAMIN [Concomitant]
  11. MULTIVITAMIN [Concomitant]
  12. HUMULIN N [Concomitant]
  13. HUMULIN N [Concomitant]
     Indication: DIABETES MELLITUS
  14. HUMALOG [Concomitant]
     Indication: DIABETES MELLITUS
  15. GUANFACINE HCL [Concomitant]
  16. METFORMIN [Concomitant]
  17. GLYBURIDE [Concomitant]
     Indication: DIABETES MELLITUS
  18. PREMARIN [Concomitant]
  19. FOLIC ACID [Concomitant]
     Indication: ANAEMIA
  20. TRICOR [Concomitant]
  21. ALLOPURINOL [Concomitant]
  22. CELEBREX [Concomitant]
     Indication: ARTHRITIS
  23. LIPITOR [Concomitant]
  24. MAVIK [Concomitant]
     Indication: BLOOD PRESSURE
  25. VITAMIN E [Concomitant]
  26. STOOL SOFTNER [Concomitant]
  27. ASPIRIN [Concomitant]
  28. GLUCOPHAGE [Concomitant]
     Indication: DIABETES MELLITUS
  29. GUAIFENEX [Concomitant]
  30. GUAIFENEX [Concomitant]
  31. GUAIFENEX [Concomitant]
  32. TYLENOL (CAPLET) [Concomitant]

REACTIONS (8)
  - ANAEMIA OF CHRONIC DISEASE [None]
  - ARTHRALGIA [None]
  - CHILLS [None]
  - CONSTIPATION [None]
  - DYSPHAGIA [None]
  - HEADACHE [None]
  - HOT FLUSH [None]
  - NON-HODGKIN'S LYMPHOMA [None]
